FAERS Safety Report 4512113-4 (Version None)
Quarter: 2004Q4

REPORT INFORMATION
  Report Type: 
  Country: None (occurrence: None)
  Receive Date: 20041129
  Receipt Date: 20041104
  Transmission Date: 20050328
  Serious: Yes (Other)
  Sender: FDA-Public Use
  Company Number: GB-ROCHE-385402

PATIENT
  Sex: Female
  Weight: 64 kg

DRUGS (5)
  1. ROACCUTANE [Suspect]
     Indication: ACNE
     Route: 048
     Dates: start: 20020415, end: 20020815
  2. ROACCUTANE [Suspect]
     Route: 048
     Dates: start: 20040110, end: 20040127
  3. ROACCUTANE [Suspect]
     Route: 048
     Dates: start: 20040128, end: 20040804
  4. ROACCUTANE [Suspect]
     Route: 048
     Dates: start: 20040805, end: 20040901
  5. DEPO-PROVERA [Concomitant]

REACTIONS (3)
  - OSTEOPENIA [None]
  - THYROXINE DECREASED [None]
  - WRIST FRACTURE [None]
